FAERS Safety Report 19868773 (Version 1)
Quarter: 2021Q3

REPORT INFORMATION
  Report Type: Spontaneous
  Country: CA (occurrence: CA)
  Receive Date: 20210921
  Receipt Date: 20210921
  Transmission Date: 20211014
  Serious: Yes (Other)
  Sender: FDA-Public Use
  Company Number: CA-CELLTRION INC.-2021CA012814

PATIENT

DRUGS (8)
  1. CORTIMENT [Concomitant]
     Dosage: 1 DOSAGE FORM (DOSAGE INFORMATION NOT AVAILABLE)
     Route: 065
  2. PREDNISONE. [Concomitant]
     Active Substance: PREDNISONE
     Dosage: 1 DOSAGE FORM (DOSAGE INFORMATION NOT AVAILABLE)
     Route: 065
  3. INFLECTRA [Suspect]
     Active Substance: INFLIXIMAB-DYYB
     Dosage: 1200 MG (EVERY 6 WEEKS)
     Route: 042
     Dates: start: 20180704, end: 20191007
  4. INFLECTRA [Suspect]
     Active Substance: INFLIXIMAB-DYYB
     Dosage: 1200 MG (EVERY 8 WEEKS)
     Route: 042
     Dates: start: 20191209
  5. INFLECTRA [Suspect]
     Active Substance: INFLIXIMAB-DYYB
     Indication: COLITIS ULCERATIVE
     Dosage: 600 MG Q 0, 2, 6 WEEKS, THEN EVERY 8 WEEKS
     Route: 042
     Dates: start: 20180323, end: 20180507
  6. INFLECTRA [Suspect]
     Active Substance: INFLIXIMAB-DYYB
     Dosage: 1200 MILLIGRAM (RESCUE DOSE)
     Route: 042
     Dates: start: 20180607, end: 20180607
  7. INFLECTRA [Suspect]
     Active Substance: INFLIXIMAB-DYYB
     Dosage: 1200 MG
     Route: 042
     Dates: start: 20210623
  8. IMURAN [Concomitant]
     Active Substance: AZATHIOPRINE
     Dosage: 1 DOSAGE FORM (DOSAGE INFORMATION NOT AVAILABLE)
     Route: 065

REACTIONS (3)
  - Hysterectomy [Unknown]
  - Overdose [Unknown]
  - Off label use [Unknown]

NARRATIVE: CASE EVENT DATE: 20210815
